FAERS Safety Report 19797654 (Version 1)
Quarter: 2021Q3

REPORT INFORMATION
  Report Type: Spontaneous
  Country: US (occurrence: US)
  Receive Date: 20210905
  Receipt Date: 20210905
  Transmission Date: 20211014
  Serious: No
  Sender: FDA-Public Use
  Company Number: None

PATIENT
  Age: 72 Year
  Sex: Male

DRUGS (1)
  1. DOCETAXEL. [Suspect]
     Active Substance: DOCETAXEL

REACTIONS (3)
  - Urinary incontinence [None]
  - Agonal respiration [None]
  - Unresponsive to stimuli [None]

NARRATIVE: CASE EVENT DATE: 20210702
